FAERS Safety Report 8613864-2 (Version None)
Quarter: 2012Q3

REPORT INFORMATION
  Report Type: 
  Country: None (occurrence: None)
  Receive Date: 20120823
  Receipt Date: 20120809
  Transmission Date: 20120928
  Serious: Yes (Other)
  Sender: FDA-Public Use
  Company Number: JP-009507513-2012SP012602

PATIENT

DRUGS (9)
  1. YODEL S [Concomitant]
     Indication: CONSTIPATION
     Dosage: 80 MG, TID
     Route: 048
  2. TELAVIC [Suspect]
     Indication: HEPATITIS C
     Dosage: 1500 MG, QD
     Route: 048
     Dates: start: 20120216, end: 20120226
  3. URSO 250 [Concomitant]
     Indication: HEPATITIS C
     Dosage: UPDATE (09MAR2012)
     Route: 048
  4. MAGMITT [Concomitant]
     Indication: CONSTIPATION
     Dosage: UPDATE (09MAR2012): FORMULATION-POR
     Route: 048
  5. TELAVIC [Suspect]
     Dosage: 1000 MG, QD
     Route: 048
     Dates: start: 20120301, end: 20120311
  6. REBETOL [Suspect]
     Indication: HEPATITIS C
     Dosage: 400 MG, QD
     Route: 048
     Dates: start: 20120216
  7. TELAVIC [Suspect]
     Dosage: 1500 MG, QD
     Route: 048
     Dates: start: 20120312, end: 20120509
  8. GLAKAY [Concomitant]
     Indication: PROPHYLAXIS
     Dosage: UPDATE (09MAR2012), UPDATE (20APR2012): STOP DATE
     Route: 048
     Dates: end: 20120227
  9. PEGINTERFERON ALFA-2B [Suspect]
     Indication: HEPATITIS C
     Dosage: 1.5 MICROGRAM PER KILOGRAM, QW
     Route: 058
     Dates: start: 20120216

REACTIONS (1)
  - URTICARIA [None]
